FAERS Safety Report 23290312 (Version 1)
Quarter: 2023Q4

REPORT INFORMATION
  Report Type: Spontaneous
  Country: GB (occurrence: GB)
  Receive Date: 20231213
  Receipt Date: 20231213
  Transmission Date: 20240109
  Serious: Yes (Hospitalization, Other)
  Sender: FDA-Public Use
  Company Number: GB-AJANTA-2023AJA00265

PATIENT
  Sex: Female

DRUGS (6)
  1. LAMOTRIGINE [Suspect]
     Active Substance: LAMOTRIGINE
     Indication: Product used for unknown indication
  2. LAMOTRIGINE [Suspect]
     Active Substance: LAMOTRIGINE
     Dosage: INCREASED DOSE
  3. ATOMOXETINE [Suspect]
     Active Substance: ATOMOXETINE
     Indication: Product used for unknown indication
  4. METHYLPHENIDATE [Concomitant]
     Active Substance: METHYLPHENIDATE
  5. RISPERIDONE [Concomitant]
     Active Substance: RISPERIDONE
  6. MELATONIN [Concomitant]
     Active Substance: MELATONIN

REACTIONS (4)
  - Potentiating drug interaction [Recovered/Resolved]
  - Drug-induced liver injury [Recovered/Resolved]
  - Hypertension [Recovered/Resolved]
  - Intracranial pressure increased [Recovered/Resolved]
